FAERS Safety Report 15465533 (Version 2)
Quarter: 2022Q1

REPORT INFORMATION
  Report Type: Spontaneous
  Country: CH (occurrence: CH)
  Receive Date: 20181004
  Receipt Date: 20220128
  Transmission Date: 20220423
  Serious: Yes (Hospitalization)
  Sender: FDA-Public Use
  Company Number: CH-SM-2018-12294

PATIENT
  Age: 78 Year
  Sex: Male

DRUGS (9)
  1. VANCOCIN [Suspect]
     Active Substance: VANCOMYCIN HYDROCHLORIDE
     Dosage: THE DRUG WAS INSTITUTED ON 07/08/2018 AFTER S. EPIDERMIDIS INFECTION.
     Route: 041
     Dates: start: 20180807, end: 20180813
  2. PLAVIX [Concomitant]
     Active Substance: CLOPIDOGREL BISULFATE
     Dosage: DRUG DISCONTINUED DURING THE HOSPITAL STAY ON 28/08/2018 PENDING A RENAL BIOPSY.
     Route: 048
     Dates: end: 20180828
  3. ATACAND [Concomitant]
     Active Substance: CANDESARTAN CILEXETIL
     Dosage: DRUG DISCONTINUED DURING THE HOSPITAL STAY, IN ORDER TO EVALUATE A POSSIBLE TREATMENT ADJUSTMENT
     Route: 048
     Dates: end: 20180814
  4. TORASEMID HELVEPHARM [Concomitant]
     Dosage: THE DRUG WAS SUSPENDED DURING THE PREVIOUS HOSPITAL STAY AND THEN REINTRODUCED AT A DOSAGE OF 20 MG/
     Route: 048
     Dates: start: 20180803
  5. ZYPREXA [Concomitant]
     Active Substance: OLANZAPINE
  6. SERTRALINE HYDROCHLORIDE [Concomitant]
     Active Substance: SERTRALINE HYDROCHLORIDE
     Route: 048
  7. PANTOZOL [Concomitant]
     Active Substance: PANTOPRAZOLE SODIUM
     Dosage: INTRODUCED DURING THE PREVIOUS STAY, AFTER THE OPERATION, TO REPLACE RANITIDIN MEPHA 300 MG/DAY
     Route: 048
     Dates: start: 20180808
  8. NOVORAPID [Concomitant]
     Active Substance: INSULIN ASPART
     Dosage: DOSAGE; IU ACCORDING TO MEDICAL DOSAGE SCHEME
     Route: 058
  9. CREON [Concomitant]
     Active Substance: PANCRELIPASE AMYLASE\PANCRELIPASE LIPASE\PANCRELIPASE PROTEASE
     Dosage: DOSAGE: 25,000 IU PER CAPSULE: DOSAGE. 2 CAPSULES TID. THE DRUG WAS INTRODUCED
     Route: 048
     Dates: start: 20180805

REACTIONS (3)
  - Acute kidney injury [Not Recovered/Not Resolved]
  - Oliguria [Recovering/Resolving]
  - Renal tubular necrosis [Not Recovered/Not Resolved]

NARRATIVE: CASE EVENT DATE: 20180813
